FAERS Safety Report 5412591-2 (Version None)
Quarter: 2007Q3

REPORT INFORMATION
  Report Type: 
  Country: None (occurrence: None)
  Receive Date: 20070809
  Receipt Date: 20070726
  Transmission Date: 20080115
  Serious: Yes (Hospitalization)
  Sender: FDA-Public Use
  Company Number: S07-FRA-03346-01

PATIENT
  Age: 82 Year
  Sex: Female

DRUGS (9)
  1. CITALOPRAM HYDROBROMIDE [Suspect]
     Dates: end: 20070705
  2. NEBILOX (NEBIVOLOL HYDROCHLORIDE) [Suspect]
     Dates: end: 20070705
  3. ALDACTONE [Concomitant]
  4. LASIX [Concomitant]
  5. ZOLPIDEM TARTRATE [Concomitant]
  6. OXAZEPAM [Concomitant]
  7. DI-ANTALVIC (DI-GESIC) [Concomitant]
  8. CETIRIZINE HCL [Concomitant]
  9. MOPRAL (OMEPRAZOLE) [Suspect]

REACTIONS (4)
  - AGITATION [None]
  - HALLUCINATION, VISUAL [None]
  - PERSECUTORY DELUSION [None]
  - SUICIDE ATTEMPT [None]
